FAERS Safety Report 9771493 (Version 2)
Quarter: 2014Q1

REPORT INFORMATION
  Report Type: Spontaneous
  Country: US (occurrence: US)
  Receive Date: 20131219
  Receipt Date: 20140113
  Transmission Date: 20141002
  Serious: Yes (Other)
  Sender: FDA-Public Use
  Company Number: US-BIOGENIDEC-2013BI119708

PATIENT
  Age: 59 Year
  Sex: Female

DRUGS (21)
  1. TYSABRI [Suspect]
     Indication: MULTIPLE SCLEROSIS
     Route: 042
     Dates: start: 20070313
  2. AVONEX [Concomitant]
     Indication: MULTIPLE SCLEROSIS
     Route: 030
  3. IBUPROFEN [Concomitant]
     Route: 048
  4. MECLIZINE [Concomitant]
     Route: 048
  5. CLONAZEPAM [Concomitant]
     Route: 048
  6. CYCLOBENZAPRINE [Concomitant]
     Route: 048
  7. IMITREX [Concomitant]
     Indication: MIGRAINE
     Route: 048
  8. CITALOPRAM [Concomitant]
     Route: 048
  9. CARISOPRODOL [Concomitant]
     Route: 048
  10. HYDROCODONE ACETAMINOPHEN [Concomitant]
     Route: 048
  11. POLYETHYLENE GLYCOL [Concomitant]
     Route: 048
  12. MIRTAZAPINE [Concomitant]
     Route: 048
  13. CHOLECALCIFEROL [Concomitant]
  14. TRAZODONE [Concomitant]
     Route: 048
  15. THIAMINE [Concomitant]
  16. B COMPLEX [Concomitant]
     Route: 048
  17. ASCORBIC ACID [Concomitant]
     Route: 048
  18. CYANOCOBALAMIN [Concomitant]
     Route: 048
  19. FERROUS SULFATE [Concomitant]
     Route: 048
  20. CALCIUM [Concomitant]
     Route: 048
  21. VITAMIN D [Concomitant]
     Route: 048

REACTIONS (1)
  - Endometrial cancer [Unknown]
